FAERS Safety Report 24561452 (Version 1)
Quarter: 2024Q4

REPORT INFORMATION
  Report Type: Spontaneous
  Country: US (occurrence: US)
  Receive Date: 20241029
  Receipt Date: 20241029
  Transmission Date: 20250115
  Serious: No
  Sender: PFIZER
  Company Number: US-PFIZER INC-PV202400137815

PATIENT
  Age: 69 Year
  Sex: Male

DRUGS (1)
  1. ZAVZPRET [Suspect]
     Active Substance: ZAVEGEPANT HYDROCHLORIDE
     Indication: Headache
     Dosage: SPRAY 10 MG INTO EITHER NOSTRIL AS NEEDED. MAX: 10 MG/24 HOURS.
     Route: 045

REACTIONS (4)
  - Throat irritation [Unknown]
  - Ear pain [Unknown]
  - Off label use [Unknown]
  - Drug ineffective for unapproved indication [Unknown]
